FAERS Safety Report 21908710 (Version 17)
Quarter: 2025Q4

REPORT INFORMATION
  Report Type: Spontaneous
  Country: US (occurrence: US)
  Receive Date: 20230125
  Receipt Date: 20251203
  Transmission Date: 20260118
  Serious: Yes (Other)
  Sender: PFIZER
  Company Number: US-PFIZER INC-PV202300013793

PATIENT
  Age: 69 Year
  Sex: Female
  Weight: 107.94 kg

DRUGS (4)
  1. IBRANCE [Suspect]
     Active Substance: PALBOCICLIB
     Indication: Breast cancer female
     Dosage: 125 MG, CYCLIC (ONCE DAILY FOR 21 CONSECUTIVE DAYS FOLLOWED BY 7 DAYS OFF)
     Route: 048
     Dates: start: 20211124
  2. IBRANCE [Suspect]
     Active Substance: PALBOCICLIB
     Dosage: 100 MG, CYCLIC (TAKE EVERY DAY FOR THREE WEEKS AND NOT TAKE THE 4TH WK/OD 1-21, 7 DAYS OFF)
     Route: 048
  3. FEMARA [Concomitant]
     Active Substance: LETROZOLE
     Indication: Breast cancer female
     Dosage: UNK
     Dates: start: 20211109
  4. LETROZOLE [Concomitant]
     Active Substance: LETROZOLE
     Dosage: 5MG TABLET BY MOUTH AT SAME TIME AS IBRANCE
     Route: 048

REACTIONS (10)
  - Renal failure [Unknown]
  - Macular degeneration [Unknown]
  - Blindness [Unknown]
  - Metastases to bone [Unknown]
  - Respiratory disorder [Unknown]
  - Urticaria [Unknown]
  - Fatigue [Unknown]
  - Malaise [Not Recovered/Not Resolved]
  - Headache [Unknown]
  - Gastritis [Unknown]
